FAERS Safety Report 8154903 (Version 6)
Quarter: 2013Q1

REPORT INFORMATION
  Report Type: Spontaneous
  Country: US (occurrence: US)
  Receive Date: 20110923
  Receipt Date: 20130227
  Transmission Date: 20140127
  Serious: Yes (Hospitalization, Other)
  Sender: FDA-Public Use
  Company Number: US-ASTRAZENECA-2010SE41935

PATIENT
  Age: 56 Year
  Sex: Male
  Weight: 72.6 kg

DRUGS (23)
  1. NEXIUM [Suspect]
     Indication: GASTROOESOPHAGEAL REFLUX DISEASE
     Dosage: SUPPOSED TO BE TAKING NEXIUM TWICE A DAY BUT HE HAS CUT BACK
     Route: 048
  2. NEXIUM [Suspect]
     Indication: BARRETT^S OESOPHAGUS
     Dosage: SUPPOSED TO BE TAKING NEXIUM TWICE A DAY BUT HE HAS CUT BACK
     Route: 048
  3. NEXIUM [Suspect]
     Indication: GASTROOESOPHAGEAL REFLUX DISEASE
     Dosage: SUPPOSED TO BE TAKING NEXIUM TWICE A DAY BUT HE HAS CUT BACK
     Route: 048
  4. NEXIUM [Suspect]
     Indication: EROSIVE OESOPHAGITIS
     Dosage: SUPPOSED TO BE TAKING NEXIUM TWICE A DAY BUT HE HAS CUT BACK
     Route: 048
  5. NEXIUM [Suspect]
     Indication: GASTROOESOPHAGEAL REFLUX DISEASE
     Route: 048
     Dates: start: 1996
  6. NEXIUM [Suspect]
     Indication: BARRETT^S OESOPHAGUS
     Route: 048
     Dates: start: 1996
  7. NEXIUM [Suspect]
     Indication: GASTROOESOPHAGEAL REFLUX DISEASE
     Route: 048
     Dates: start: 1996
  8. NEXIUM [Suspect]
     Indication: EROSIVE OESOPHAGITIS
     Route: 048
     Dates: start: 1996
  9. NEXIUM [Suspect]
     Indication: GASTROOESOPHAGEAL REFLUX DISEASE
     Route: 048
  10. NEXIUM [Suspect]
     Indication: BARRETT^S OESOPHAGUS
     Route: 048
  11. NEXIUM [Suspect]
     Indication: GASTROOESOPHAGEAL REFLUX DISEASE
     Route: 048
  12. NEXIUM [Suspect]
     Indication: EROSIVE OESOPHAGITIS
     Route: 048
  13. SEROQUEL [Suspect]
     Indication: AGITATION
     Route: 048
  14. SEROQUEL [Suspect]
     Indication: DEPRESSION
     Route: 048
  15. SEROQUEL [Suspect]
     Indication: SLEEP DISORDER
     Route: 048
  16. SEROQUEL [Suspect]
     Indication: AGITATION
     Route: 048
  17. SEROQUEL [Suspect]
     Indication: DEPRESSION
     Route: 048
  18. SEROQUEL [Suspect]
     Indication: SLEEP DISORDER
     Route: 048
  19. SEROQUEL [Suspect]
     Indication: AGITATION
     Route: 048
     Dates: start: 2010
  20. SEROQUEL [Suspect]
     Indication: DEPRESSION
     Route: 048
     Dates: start: 2010
  21. SEROQUEL [Suspect]
     Indication: SLEEP DISORDER
     Route: 048
     Dates: start: 2010
  22. CRESTOR [Suspect]
     Indication: BLOOD CHOLESTEROL INCREASED
     Route: 048
     Dates: start: 2003
  23. UNSPECIFIED INGREDIENT [Suspect]
     Route: 065

REACTIONS (14)
  - Myocardial infarction [Recovering/Resolving]
  - Gastrooesophageal reflux disease [Unknown]
  - Arterial occlusive disease [Unknown]
  - Chest pain [Unknown]
  - Cardiac disorder [Unknown]
  - Barrett^s oesophagus [Unknown]
  - Decreased appetite [Unknown]
  - Poor personal hygiene [Unknown]
  - Depression [Unknown]
  - Intentional drug misuse [Unknown]
  - Drug intolerance [Unknown]
  - Off label use [Unknown]
  - Wrong technique in drug usage process [Unknown]
  - Drug dose omission [Unknown]
